FAERS Safety Report 14118943 (Version 1)
Quarter: 2017Q4

REPORT INFORMATION
  Report Type: Spontaneous
  Country: US (occurrence: US)
  Receive Date: 20171024
  Receipt Date: 20171024
  Transmission Date: 20180321
  Serious: Yes (Other)
  Sender: FDA-Public Use
  Company Number: US-AMGEN-USASP2017159927

PATIENT

DRUGS (4)
  1. INTERFERON ALFA-2A [Suspect]
     Active Substance: INTERFERON ALFA-2A
     Indication: GASTRIC CANCER
     Dosage: UNK, (DAY 1)
     Route: 058
  2. HYDROXYUREA. [Suspect]
     Active Substance: HYDROXYUREA
     Indication: GASTRIC CANCER
     Dosage: 4.3 G/M2, OVER 24 HOUR
     Route: 042
  3. FILGRASTIM [Suspect]
     Active Substance: FILGRASTIM
     Indication: GASTRIC CANCER
     Dosage: 480 MUG, DAY 3-6, WEEKS 1-6
     Route: 058
  4. FLUOROURACIL. [Suspect]
     Active Substance: FLUOROURACIL
     Indication: GASTRIC CANCER
     Dosage: 2.6 G/M2, OVER 24 HOUR
     Route: 042

REACTIONS (2)
  - Cardiotoxicity [Unknown]
  - Neuromuscular toxicity [Unknown]
